FAERS Safety Report 6532764-5 (Version None)
Quarter: 2010Q1

REPORT INFORMATION
  Report Type: 
  Country: None (occurrence: None)
  Receive Date: 20100111
  Receipt Date: 20100105
  Transmission Date: 20100710
  Serious: Yes (Death, Hospitalization)
  Sender: FDA-Public Use
  Company Number: PHHY2010CA00658

PATIENT
  Sex: Female

DRUGS (2)
  1. CLOZARIL [Suspect]
     Indication: SCHIZOPHRENIA
     Dosage: 250 MG
     Dates: start: 20071211
  2. HALDOL [Concomitant]

REACTIONS (4)
  - ACUTE PULMONARY OEDEMA [None]
  - AGITATION [None]
  - BLOOD TRIGLYCERIDES ABNORMAL [None]
  - RESPIRATORY DISORDER [None]
